FAERS Safety Report 15692820 (Version 1)
Quarter: 2018Q4

REPORT INFORMATION
  Report Type: Report from Study
  Country: US (occurrence: US)
  Receive Date: 20181206
  Receipt Date: 20181206
  Transmission Date: 20190205
  Serious: Yes (Other)
  Sender: FDA-Public Use
  Company Number: US-ROCHE-2224519

PATIENT
  Age: 29 Year
  Sex: Female
  Weight: 45.6 kg

DRUGS (1)
  1. ATEZOLIZUMAB. [Suspect]
     Active Substance: ATEZOLIZUMAB
     Indication: ALVEOLAR SOFT PART SARCOMA
     Dosage: MOST RECENT DOSE (1200 MG) OF ATEZOLIZUMAB GIVEN PRIOR TO SAE ONSET DATE : 02/AUG/2018
     Route: 042
     Dates: start: 20180419

REACTIONS (1)
  - Laryngeal haemorrhage [Unknown]
